FAERS Safety Report 16074771 (Version 2)
Quarter: 2019Q1

REPORT INFORMATION
  Report Type: Spontaneous
  Country: PL (occurrence: PL)
  Receive Date: 20190314
  Receipt Date: 20190326
  Transmission Date: 20190418
  Serious: Yes (Hospitalization, Other)
  Sender: FDA-Public Use
  Company Number: GXKR2002PL01283

PATIENT
  Age: 23 Year
  Sex: Male

DRUGS (6)
  1. AMINOPHENAZONE [Suspect]
     Active Substance: AMINOPHENAZONE
     Dosage: 600 MG, UNK
     Route: 048
  2. PARACETAMOL [Suspect]
     Active Substance: ACETAMINOPHEN
     Dosage: 3 G, UNK
     Route: 065
  3. PHENOXYMETHYLPENICILLIN [Suspect]
     Active Substance: PENICILLIN V
     Dosage: 1000000 UG/LITRE, UNK
     Route: 065
  4. PARACETAMOL [Suspect]
     Active Substance: ACETAMINOPHEN
     Indication: OROPHARYNGEAL PAIN
     Dosage: 600 MG, QD
     Route: 048
     Dates: start: 20000302, end: 20000303
  5. AMINOPHENAZONE [Suspect]
     Active Substance: AMINOPHENAZONE
     Indication: OROPHARYNGEAL PAIN
     Dosage: 300 MG, UNK
     Route: 048
     Dates: start: 20000301, end: 20000303
  6. PHENOXYMETHYLPENICILLIN [Suspect]
     Active Substance: PENICILLIN V
     Indication: OROPHARYNGEAL PAIN
     Dosage: 3000000 LU, QD
     Route: 048
     Dates: start: 20000302, end: 20000303

REACTIONS (11)
  - Rash [Recovered/Resolved]
  - Thrombocytopenia [Unknown]
  - Dermatitis bullous [Recovered/Resolved]
  - Toxic epidermal necrolysis [Recovered/Resolved]
  - Oropharyngeal pain [Unknown]
  - Pancytopenia [Unknown]
  - Leukopenia [Unknown]
  - Aplastic anaemia [Unknown]
  - Fatigue [Unknown]
  - Lip erosion [Recovered/Resolved]
  - Pyrexia [Unknown]

NARRATIVE: CASE EVENT DATE: 20000301
